FAERS Safety Report 6545051-6 (Version None)
Quarter: 2010Q1

REPORT INFORMATION
  Report Type: 
  Country: None (occurrence: None)
  Receive Date: 20100121
  Receipt Date: 20100118
  Transmission Date: 20100710
  Serious: Yes (Other)
  Sender: FDA-Public Use
  Company Number: B0626910A

PATIENT
  Sex: Male

DRUGS (2)
  1. AUGMENTIN [Suspect]
     Indication: TOOTH INFECTION
     Route: 048
     Dates: start: 20100109, end: 20100113
  2. BETABLOCKER [Concomitant]
     Route: 065

REACTIONS (3)
  - FATIGUE [None]
  - HAEMOLYTIC ANAEMIA [None]
  - RETICULOCYTOSIS [None]
